FAERS Safety Report 8243168-1 (Version None)
Quarter: 2012Q1

REPORT INFORMATION
  Report Type: 
  Country: None (occurrence: None)
  Receive Date: 20120329
  Receipt Date: 20120322
  Transmission Date: 20120608
  Serious: Yes (Other)
  Sender: FDA-Public Use
  Company Number: US-NOVOPROD-347198

PATIENT
  Age: 5 Year
  Sex: Male
  Weight: 17.234 kg

DRUGS (4)
  1. NORDITROPIN FLEXPRO 3.3 MG/ML [Suspect]
     Indication: GROWTH HORMONE DEFICIENCY
     Dosage: 0.9 MG, ONCE A DAY FOR 6 DAYS A WEEK
     Route: 058
     Dates: start: 20080201
  2. OMEGA 3                            /01334101/ [Concomitant]
     Indication: VITAMIN SUPPLEMENTATION
     Dosage: UNK
     Route: 048
  3. COQ10                              /00517201/ [Concomitant]
     Indication: VITAMIN SUPPLEMENTATION
     Dosage: UNK
     Route: 048
  4. VITAMIN D [Concomitant]
     Indication: VITAMIN SUPPLEMENTATION
     Dosage: UNK
     Route: 048

REACTIONS (1)
  - OSTEONECROSIS [None]
